FAERS Safety Report 23608918 (Version 2)
Quarter: 2024Q1

REPORT INFORMATION
  Report Type: Spontaneous
  Country: DE (occurrence: DE)
  Receive Date: 20240308
  Receipt Date: 20240328
  Transmission Date: 20240410
  Serious: Yes (Disabling, Other)
  Sender: FDA-Public Use
  Company Number: None

PATIENT
  Age: 50 Year
  Sex: Male
  Weight: 73 kg

DRUGS (1)
  1. ESCITALOPRAM [Suspect]
     Active Substance: ESCITALOPRAM OXALATE
     Indication: Depression
     Dosage: 10MG
     Route: 048
     Dates: start: 20230915, end: 20231227

REACTIONS (2)
  - Erectile dysfunction [Not Recovered/Not Resolved]
  - Orgasm abnormal [Not Recovered/Not Resolved]

NARRATIVE: CASE EVENT DATE: 20231001
